FAERS Safety Report 6955380-X (Version None)
Quarter: 2010Q3

REPORT INFORMATION
  Report Type: 
  Country: None (occurrence: None)
  Receive Date: 20100830
  Receipt Date: 20100325
  Transmission Date: 20110219
  Serious: No
  Sender: FDA-Public Use
  Company Number: US-MYLANLABS-2010S1005271

PATIENT
  Sex: Female

DRUGS (1)
  1. LISINOPRIL [Suspect]

REACTIONS (2)
  - FATIGUE [None]
  - HEART RATE INCREASED [None]
